FAERS Safety Report 11615298 (Version 2)
Quarter: 2015Q4

REPORT INFORMATION
  Report Type: Report from Study
  Country: BR (occurrence: BR)
  Receive Date: 20151009
  Receipt Date: 20151026
  Transmission Date: 20160304
  Serious: Yes (Other)
  Sender: FDA-Public Use
  Company Number: PHHY2015BR121565

PATIENT
  Weight: 74 kg

DRUGS (2)
  1. DIOVAN HCT [Suspect]
     Active Substance: HYDROCHLOROTHIAZIDE\VALSARTAN
     Indication: HYPERTENSION
     Dosage: 2 DF (VALSARTAN 160 MG AND HYDROCHOLORTHIAZIDE 12.5 MG), QD (STARTED 5 YEARS AGO)
     Route: 048
  2. OMEPRAZOLE. [Concomitant]
     Active Substance: OMEPRAZOLE
     Indication: HIATUS HERNIA
     Dosage: 2 DF, QD (STARTED 8 YEARS AGO)
     Route: 048

REACTIONS (1)
  - Dementia Alzheimer^s type [Recovering/Resolving]
